APPROVED DRUG PRODUCT: LIDOCAINE HYDROCHLORIDE
Active Ingredient: LIDOCAINE HYDROCHLORIDE
Strength: 0.5%
Dosage Form/Route: INJECTABLE;INJECTION
Application: A091056 | Product #001
Applicant: RISING PHARMA HOLDINGS INC
Approved: Dec 8, 2010 | RLD: No | RS: No | Type: DISCN